FAERS Safety Report 11238071 (Version 1)
Quarter: 2015Q3

REPORT INFORMATION
  Report Type: Spontaneous
  Country: US (occurrence: US)
  Receive Date: 20150703
  Receipt Date: 20150703
  Transmission Date: 20151125
  Serious: No
  Sender: FDA-Public Use
  Company Number: US-009507513-1506USA012298

PATIENT

DRUGS (2)
  1. HEXADROL [Suspect]
     Active Substance: DEXAMETHASONE
     Indication: TRANSPLANT REJECTION
  2. BORTEZOMIB [Suspect]
     Active Substance: BORTEZOMIB
     Indication: TRANSPLANT REJECTION
     Dosage: 1.3 MG/M2, ON DAY 1, 4, 7, AND 10
     Route: 042

REACTIONS (1)
  - Neuropathy peripheral [Recovered/Resolved]
